FAERS Safety Report 10017333 (Version 2)
Quarter: 2014Q2

REPORT INFORMATION
  Report Type: Spontaneous
  Country: DE (occurrence: DE)
  Receive Date: 20140318
  Receipt Date: 20140528
  Transmission Date: 20141212
  Serious: Yes (Other)
  Sender: FDA-Public Use
  Company Number: DE-JNJFOC-20140308938

PATIENT
  Age: 64 Year
  Sex: Female
  Weight: 68 kg

DRUGS (5)
  1. XARELTO [Suspect]
     Indication: HIP SURGERY
     Route: 048
     Dates: start: 20140212, end: 20140423
  2. XARELTO [Suspect]
     Indication: THROMBOSIS PROPHYLAXIS
     Route: 048
     Dates: start: 20140212, end: 20140423
  3. XARELTO [Suspect]
     Indication: KNEE ARTHROPLASTY
     Route: 048
     Dates: start: 20140212, end: 20140423
  4. RAMIPRIL [Concomitant]
     Route: 065
     Dates: start: 20140107
  5. ATORVASTATIN [Concomitant]
     Route: 065
     Dates: start: 20140107

REACTIONS (1)
  - Thrombocytosis [Recovered/Resolved]
